FAERS Safety Report 7428471-7 (Version None)
Quarter: 2011Q2

REPORT INFORMATION
  Report Type: 
  Country: None (occurrence: None)
  Receive Date: 20110415
  Receipt Date: 20110415
  Transmission Date: 20111010
  Serious: No
  Sender: FDA-Public Use
  Company Number: None

PATIENT
  Sex: Female
  Weight: 79.8 kg

DRUGS (5)
  1. CETIRIZINE HCL [Concomitant]
  2. TARCEVA [Suspect]
     Dosage: 1400 MG
  3. ATENOLOL [Concomitant]
  4. OXYCET [Concomitant]
  5. GEMCITABINE HYDROCHLORIDE [Suspect]
     Dosage: 3330 MG

REACTIONS (1)
  - NEUTROPENIA [None]
